FAERS Safety Report 22115347 (Version 2)
Quarter: 2023Q2

REPORT INFORMATION
  Report Type: Report from Study
  Country: IT (occurrence: IT)
  Receive Date: 20230320
  Receipt Date: 20230405
  Transmission Date: 20230722
  Serious: Yes (Death, Hospitalization)
  Sender: FDA-Public Use
  Company Number: IT-DSJP-DSU-2023-110630

PATIENT
  Age: 52 Year
  Sex: Female
  Weight: 70 kg

DRUGS (1)
  1. ENHERTU [Suspect]
     Active Substance: FAM-TRASTUZUMAB DERUXTECAN-NXKI
     Indication: HER2 positive breast cancer
     Dosage: 320 MG, ONCE EVERY 3 WK
     Route: 042
     Dates: start: 20220722, end: 20230207

REACTIONS (6)
  - Respiratory failure [Fatal]
  - Dyspnoea [Fatal]
  - Interstitial lung disease [Fatal]
  - Disease progression [Unknown]
  - Pulmonary toxicity [Unknown]
  - Sinus tachycardia [Unknown]

NARRATIVE: CASE EVENT DATE: 20230207
